FAERS Safety Report 8569033 (Version 2)
Quarter: 2013Q2

REPORT INFORMATION
  Report Type: Spontaneous
  Country: FR (occurrence: FR)
  Receive Date: 20120518
  Receipt Date: 20130612
  Transmission Date: 20140414
  Serious: Yes (Hospitalization, Other)
  Sender: FDA-Public Use
  Company Number: PHHY2012FR040667

PATIENT
  Age: 13 Year
  Sex: Female

DRUGS (1)
  1. RITALINE [Suspect]
     Indication: ATTENTION DEFICIT/HYPERACTIVITY DISORDER
     Dosage: 20 MG, DAILY
     Route: 048

REACTIONS (6)
  - Delirium [Unknown]
  - Bipolar disorder [Unknown]
  - Depersonalisation [Unknown]
  - Depression [Unknown]
  - Mania [Unknown]
  - Memory impairment [Unknown]
